FAERS Safety Report 4378456-2 (Version None)
Quarter: 2004Q2

REPORT INFORMATION
  Report Type: 
  Country: None (occurrence: None)
  Receive Date: 20040609
  Receipt Date: 20040527
  Transmission Date: 20050107
  Serious: Yes (Hospitalization, Other)
  Sender: FDA-Public Use
  Company Number: 2004035659

PATIENT
  Age: 54 Year
  Sex: Male

DRUGS (2)
  1. LITHIUM (LITHIUM) [Suspect]
     Indication: BIPOLAR DISORDER
     Dosage: 1500 MG (5 IN 1 D)
  2. THIORIDAZINE HCL [Concomitant]

REACTIONS (19)
  - ANOREXIA [None]
  - APHASIA [None]
  - APRAXIA [None]
  - ASTHENIA [None]
  - ATAXIA [None]
  - CONFUSIONAL STATE [None]
  - DELIRIUM [None]
  - DRUG LEVEL ABOVE THERAPEUTIC [None]
  - DYSARTHRIA [None]
  - DYSGEUSIA [None]
  - FATIGUE [None]
  - HAEMODIALYSIS [None]
  - HYPERCALCAEMIA [None]
  - IRRITABILITY [None]
  - NAUSEA [None]
  - RENAL FAILURE ACUTE [None]
  - RESTLESSNESS [None]
  - SOMNOLENCE [None]
  - TREMOR [None]
